FAERS Safety Report 4487773-7 (Version None)
Quarter: 2004Q4

REPORT INFORMATION
  Report Type: 
  Country: None (occurrence: None)
  Receive Date: 20041025
  Receipt Date: 20041020
  Transmission Date: 20050328
  Serious: Yes (Hospitalization)
  Sender: FDA-Public Use
  Company Number: J081-002-001786

PATIENT
  Age: 71 Year
  Sex: Female
  Weight: 39.5 kg

DRUGS (17)
  1. ARICEPT [Suspect]
     Indication: DEMENTIA ALZHEIMER'S TYPE
     Dosage: 3 MG; 5 MG, 1 IN 1 D, ORAL
     Route: 048
     Dates: start: 20040906, end: 20040912
  2. ARICEPT [Suspect]
     Indication: DEMENTIA ALZHEIMER'S TYPE
     Dosage: 3 MG; 5 MG, 1 IN 1 D, ORAL
     Route: 048
     Dates: start: 20040913, end: 20040917
  3. WARFARIN           (WARFARIN  POTASSIUM) [Concomitant]
  4. FASTIC         (NATEGLINIDE) [Concomitant]
  5. PREDNISOLONE [Concomitant]
  6. FLUTIDE             (FLUTICASONE PROPIONATE) [Concomitant]
  7. UNIPHYL [Concomitant]
  8. AMLODIPINE BESYLATE [Concomitant]
  9. PERSANTIN-L       (DIPYRIDAMOLE) [Concomitant]
  10. PARAMIDIN       (BUCOLOME) [Concomitant]
  11. ANZIEF         (ALLOPURINOL) [Concomitant]
  12. LANSOPRAZOLE [Concomitant]
  13. ALFAROL  (ALFACALCIDOL) [Concomitant]
  14. CALCIUM LACTATE    (CALCIUM LACTATE) [Concomitant]
  15. MUCOSTA      (REBAMIPIDE) [Concomitant]
  16. LASIX [Concomitant]
  17. ALDACTONE [Concomitant]

REACTIONS (2)
  - LEUKOPENIA [None]
  - NEUTROPHIL COUNT DECREASED [None]
